FAERS Safety Report 6973353-8 (Version None)
Quarter: 2010Q3

REPORT INFORMATION
  Report Type: 
  Country: None (occurrence: None)
  Receive Date: 20100907
  Receipt Date: 20100820
  Transmission Date: 20110219
  Serious: Yes (Disabling, Other)
  Sender: FDA-Public Use
  Company Number: ACO-01775-2010

PATIENT
  Sex: Female
  Weight: 70.3075 kg

DRUGS (8)
  1. AMPYRA [Suspect]
     Indication: PERONEAL NERVE PALSY
     Dosage: 10 MG BID ORAL
     Route: 048
     Dates: start: 20100101
  2. COPAXONE [Concomitant]
  3. DETROL LA [Concomitant]
  4. CRESTOR [Concomitant]
  5. BACLOFEN [Concomitant]
  6. GABAPENTIN [Concomitant]
  7. FEXFOFENADINE [Concomitant]
  8. ASTEPRO [Concomitant]

REACTIONS (2)
  - CONDITION AGGRAVATED [None]
  - GAIT DISTURBANCE [None]
